FAERS Safety Report 5787871-1 (Version None)
Quarter: 2008Q2

REPORT INFORMATION
  Report Type: 
  Country: None (occurrence: None)
  Receive Date: 20080618
  Receipt Date: 20070925
  Transmission Date: 20081010
  Serious: Yes (Other)
  Sender: FDA-Public Use
  Company Number: 200710726US

PATIENT
  Age: 73 Year
  Sex: Female

DRUGS (15)
  1. LANTUS [Suspect]
     Indication: TYPE 2 DIABETES MELLITUS
     Dosage: 20 U
     Dates: start: 20070202
  2. OPTICLIK [Suspect]
     Indication: TYPE 2 DIABETES MELLITUS
  3. LOPID [Concomitant]
  4. CLOPIDOGREL (PLAVIX /01220701/) [Concomitant]
  5. DIGOXIN [Concomitant]
  6. LASIX [Concomitant]
  7. MEFENAMIC ACID (ASAM MEFENAMAT) [Concomitant]
  8. ESCITALOPRAM OXALATE (LEXAPRO) [Concomitant]
  9. PROPANOLOL HYDROCHLORIDE (ENDURE) [Concomitant]
  10. COREG [Concomitant]
  11. PARACETAMOL, HYDROCODONE BITARTRATE (LORTAB /00607101/) [Concomitant]
  12. TRAZODONE HYDROCHLORIDE (DESYREL) [Concomitant]
  13. DOCUSATE SODIUM (COLACE) [Concomitant]
  14. ^LONOBID^ NOS [Concomitant]
  15. ALTACEM [Concomitant]

REACTIONS (2)
  - DRUG INEFFECTIVE [None]
  - HYPERGLYCAEMIA [None]
